FAERS Safety Report 8613020-8 (Version None)
Quarter: 2012Q3

REPORT INFORMATION
  Report Type: 
  Country: None (occurrence: None)
  Receive Date: 20120822
  Receipt Date: 20120719
  Transmission Date: 20120928
  Serious: Yes (Disabling, Other)
  Sender: FDA-Public Use
  Company Number: GB-PFIZER INC-2012175762

PATIENT
  Age: 69 Year
  Sex: Male

DRUGS (6)
  1. AMOXICILLIN AND CLAVULANATE POTASSIUM [Suspect]
     Indication: TOOTH INFECTION
     Dosage: 1 DF, 3X/DAY; STRENGHT 250/125
     Route: 065
     Dates: start: 20120416
  2. RAMIPRIL [Concomitant]
     Dosage: 2.5 MG, UNK
     Route: 065
  3. METRONIDAZOLE [Suspect]
     Indication: TOOTH INFECTION
     Dosage: UNK, THRICE IN A DAY
     Route: 065
     Dates: start: 20120416
  4. BETAHISTINE DIHYDROCHLORIDE [Concomitant]
     Dosage: 16MG, UNK
     Route: 065
  5. CLINDAMYCIN HCL [Suspect]
     Dosage: UNK
     Route: 065
     Dates: start: 20120426
  6. SIMVASTATIN [Concomitant]
     Dosage: 40MG, UNK
     Route: 065

REACTIONS (1)
  - HEPATITIS ACUTE [None]
